FAERS Safety Report 17037557 (Version 3)
Quarter: 2019Q4

REPORT INFORMATION
  Report Type: Report from Study
  Country: UA (occurrence: UA)
  Receive Date: 20191115
  Receipt Date: 20191227
  Transmission Date: 20200122
  Serious: Yes (Other)
  Sender: FDA-Public Use
  Company Number: UA-GLAXOSMITHKLINE-UA2019GSK207034

PATIENT
  Age: 48 Year
  Sex: Female
  Weight: 80 kg

DRUGS (3)
  1. NIRAPARIB [Suspect]
     Active Substance: NIRAPARIB
     Indication: OVARIAN CANCER
     Dosage: 300 MG, QD
     Dates: start: 20180511, end: 20190411
  2. ARGININE GLUTAMATE [Concomitant]
     Active Substance: ARGININE GLUTAMATE
     Dosage: 750 MG, TID
  3. GYNO-TARDYFERON [Concomitant]
     Dosage: 1 TABLET, BID

REACTIONS (1)
  - Hepatitis toxic [Recovered/Resolved]

NARRATIVE: CASE EVENT DATE: 20190117
